FAERS Safety Report 10014709 (Version 4)
Quarter: 2014Q2

REPORT INFORMATION
  Report Type: Report from Study
  Country: US (occurrence: US)
  Receive Date: 20140317
  Receipt Date: 20140626
  Transmission Date: 20141212
  Serious: Yes (Other)
  Sender: FDA-Public Use
  Company Number: PHEH2013US010298

PATIENT
  Age: 39 Year
  Sex: Female
  Weight: 60.32 kg

DRUGS (4)
  1. GILENYA [Suspect]
     Indication: MULTIPLE SCLEROSIS
     Dosage: 0.5 MG, QD
     Route: 048
     Dates: start: 20130311
  2. OLEPTRO [Concomitant]
     Indication: DEPRESSION
     Dosage: 150 MG, QHS
     Route: 048
     Dates: start: 201205
  3. ADDERALL [Concomitant]
     Indication: ATTENTION DEFICIT/HYPERACTIVITY DISORDER
     Dosage: 10 MG, UNK
     Route: 048
     Dates: start: 201301
  4. ADDERALL [Concomitant]
     Indication: FATIGUE

REACTIONS (30)
  - Sexually transmitted disease [Unknown]
  - Sluggishness [Recovering/Resolving]
  - Full blood count abnormal [Unknown]
  - Oral pain [Unknown]
  - Dysuria [Unknown]
  - Muscular weakness [Unknown]
  - Lymphadenopathy [Unknown]
  - Uhthoff^s phenomenon [Unknown]
  - Balance disorder [Unknown]
  - Gait disturbance [Unknown]
  - Confusional state [Unknown]
  - Sleep disorder [Unknown]
  - Thirst [Unknown]
  - Constipation [Unknown]
  - Polydipsia [Unknown]
  - Hunger [Unknown]
  - Temperature intolerance [Not Recovered/Not Resolved]
  - Dementia [Unknown]
  - Asthma [Unknown]
  - Dyspnoea [Unknown]
  - Cough [Unknown]
  - Increased appetite [Unknown]
  - Disturbance in attention [Unknown]
  - Cognitive disorder [Unknown]
  - Sinusitis [Unknown]
  - White blood cell count decreased [Unknown]
  - Lymphocyte count decreased [Unknown]
  - Dizziness [Unknown]
  - Back pain [Unknown]
  - Asthenia [Unknown]
